FAERS Safety Report 12531651 (Version 1)
Quarter: 2016Q3

REPORT INFORMATION
  Report Type: Spontaneous
  Country: IN (occurrence: IN)
  Receive Date: 20160706
  Receipt Date: 20160706
  Transmission Date: 20161109
  Serious: Yes (Other)
  Sender: FDA-Public Use
  Company Number: AKRIMAX-TIR-2016-0786

PATIENT
  Age: 21 Year
  Sex: Female

DRUGS (1)
  1. LEVOTHYROXINE. [Suspect]
     Active Substance: LEVOTHYROXINE
     Indication: PRODUCT USED FOR UNKNOWN INDICATION
     Dosage: UNSPECIFIED UNIT, UNSPECIFIED INTERVAL

REACTIONS (3)
  - Drug withdrawal syndrome [Unknown]
  - Hypothyroidism [Unknown]
  - Pericardial effusion [Recovered/Resolved]
